FAERS Safety Report 9847089 (Version 2)
Quarter: 2014Q1

REPORT INFORMATION
  Report Type: Spontaneous
  Country: FR (occurrence: FR)
  Receive Date: 20140127
  Receipt Date: 20140127
  Transmission Date: 20141002
  Serious: Yes (Death, Hospitalization, Other)
  Sender: FDA-Public Use
  Company Number: FR-TAKEDA-TPA2013A07468

PATIENT
  Sex: 0

DRUGS (2)
  1. ADENURIC [Suspect]
     Indication: GOUT
     Dosage: UNK
     Route: 048
     Dates: start: 2010
  2. MYOLASTAN [Suspect]
     Indication: PRODUCT USED FOR UNKNOWN INDICATION
     Dosage: UNK
     Route: 048

REACTIONS (1)
  - Toxic epidermal necrolysis [Fatal]
